FAERS Safety Report 5382243-6 (Version None)
Quarter: 2007Q3

REPORT INFORMATION
  Report Type: 
  Country: None (occurrence: None)
  Receive Date: 20070709
  Receipt Date: 20070627
  Transmission Date: 20080115
  Serious: Yes (Other)
  Sender: FDA-Public Use
  Company Number: US-PFIZER INC-2007054298

PATIENT
  Sex: Female
  Weight: 68 kg

DRUGS (2)
  1. CHANTIX [Suspect]
     Indication: SMOKING CESSATION THERAPY
     Dosage: TEXT:DAILY
     Dates: start: 20070501, end: 20070601
  2. HERBAL PREPARATION [Concomitant]

REACTIONS (6)
  - ABDOMINAL DISTENSION [None]
  - ACTIVITIES OF DAILY LIVING IMPAIRED [None]
  - ASTHENIA [None]
  - FIBROMYALGIA [None]
  - MENOPAUSE [None]
  - NAUSEA [None]
